FAERS Safety Report 6266357-4 (Version None)
Quarter: 2009Q3

REPORT INFORMATION
  Report Type: 
  Country: None (occurrence: None)
  Receive Date: 20090713
  Receipt Date: 20090630
  Transmission Date: 20100115
  Serious: Yes (Other)
  Sender: FDA-Public Use
  Company Number: ES-ELI_LILLY_AND_COMPANY-ES200907000300

PATIENT
  Age: 55 Year
  Sex: Female

DRUGS (12)
  1. BYETTA [Suspect]
     Indication: TYPE 2 DIABETES MELLITUS
     Dosage: UNK, UNKNOWN
     Route: 065
     Dates: start: 20090501, end: 20090601
  2. PANTOPRAZOLE SODIUM [Concomitant]
     Dosage: 40 MG, DAILY (1/D)
     Route: 048
     Dates: start: 20081103
  3. DOPUPAL [Concomitant]
     Dosage: 75 MG, DAILY (1/D)
     Route: 048
     Dates: start: 20090525
  4. GALVUS [Concomitant]
     Dosage: 50 MG, 2/D
     Route: 048
     Dates: start: 20081210
  5. EMCONCOR [Concomitant]
     Dosage: 2.5 MG, DAILY (1/D)
     Route: 048
     Dates: start: 20080528
  6. IDALPREM [Concomitant]
     Dosage: 1 MG, 2/D
     Route: 048
     Dates: start: 20090504
  7. ZOMIG [Concomitant]
     Dosage: 2.5 MG, EVERY 4 HRS
     Route: 048
     Dates: start: 20090504
  8. NOVORAPID [Concomitant]
     Dosage: 20 IU, EACH MORNING
     Route: 065
     Dates: start: 20070214
  9. NOVORAPID [Concomitant]
     Dosage: 20 IU, EACH EVENING
     Route: 065
     Dates: start: 20070214
  10. METFORMIN HCL [Concomitant]
     Dosage: 850 MG, 2/D
     Route: 048
     Dates: start: 20080214
  11. LANTUS [Concomitant]
     Dosage: 70 IU, EACH EVENING
     Route: 065
     Dates: start: 20080214
  12. VALS [Concomitant]
     Dosage: 80 MG, EACH EVENING
     Route: 048
     Dates: start: 20080528

REACTIONS (2)
  - OFF LABEL USE [None]
  - PANCREATITIS [None]
